FAERS Safety Report 8432596-7 (Version None)
Quarter: 2012Q2

REPORT INFORMATION
  Report Type: 
  Country: None (occurrence: None)
  Receive Date: 20120613
  Receipt Date: 20120531
  Transmission Date: 20120825
  Serious: Yes (Other)
  Sender: FDA-Public Use
  Company Number: US-BAYER-2012-055504

PATIENT
  Age: 56 Year
  Sex: Female
  Weight: 72 kg

DRUGS (5)
  1. IBUPROFEN [Concomitant]
  2. ACETAMINOPHEN [Concomitant]
  3. MULTI-VITAMIN [Concomitant]
  4. PHILLIPS' CHEWABLE TABLETS MINT [Suspect]
     Indication: ORAL HERPES
     Dosage: 4 DF, PRN, BOTTLE COUNT 100S
     Route: 048
  5. ONE-A-DAY WOMEN'S 50 + ADVANTAGE [Suspect]
     Dosage: 1 DF, QD
     Route: 048

REACTIONS (3)
  - ORAL HERPES [None]
  - GASTRIC ULCER [None]
  - ABDOMINAL DISCOMFORT [None]
